FAERS Safety Report 5975202-3 (Version None)
Quarter: 2008Q4

REPORT INFORMATION
  Report Type: 
  Country: None (occurrence: None)
  Receive Date: 20081202
  Receipt Date: 20080919
  Transmission Date: 20090506
  Serious: No
  Sender: FDA-Public Use
  Company Number: US-ABBOTT-08P-163-0477053-00

PATIENT
  Sex: Female
  Weight: 72.64 kg

DRUGS (3)
  1. LUPRON DEPOT [Suspect]
     Indication: PROPHYLAXIS
     Dosage: 1 INJECTION EVERY 3 WEEKS, TIMES THREE
     Route: 030
     Dates: start: 20020101, end: 20020101
  2. SYNTHROID [Suspect]
     Indication: HYPOTHYROIDISM
     Dates: start: 20020101
  3. DULOXETINE HYDROCHLORIDE [Concomitant]
     Indication: DRUG USE FOR UNKNOWN INDICATION

REACTIONS (20)
  - ARTHRALGIA [None]
  - ASHERMAN'S SYNDROME [None]
  - DIZZINESS [None]
  - FIBROMYALGIA [None]
  - HYPERHIDROSIS [None]
  - HYPOTHYROIDISM [None]
  - HYPOVENTILATION [None]
  - INJECTION SITE PUSTULE [None]
  - LETHARGY [None]
  - MENOPAUSAL SYMPTOMS [None]
  - MOBILITY DECREASED [None]
  - PAIN [None]
  - RESORPTION BONE INCREASED [None]
  - TOOTH INFECTION [None]
  - UTERINE ATROPHY [None]
  - VAGINAL HAEMORRHAGE [None]
  - VAGINAL LACERATION [None]
  - VISION BLURRED [None]
  - VULVOVAGINAL DRYNESS [None]
  - VULVOVAGINAL PAIN [None]
